FAERS Safety Report 4705323-4 (Version None)
Quarter: 2005Q3

REPORT INFORMATION
  Report Type: 
  Country: None (occurrence: None)
  Receive Date: 20050701
  Receipt Date: 20050421
  Transmission Date: 20060218
  Serious: Yes (Other)
  Sender: FDA-Public Use
  Company Number: PHBS2005ZA05762

PATIENT
  Age: 11 Year
  Sex: Female
  Weight: 46 kg

DRUGS (6)
  1. RITALIN [Suspect]
     Indication: ATTENTION DEFICIT/HYPERACTIVITY DISORDER
     Dosage: 10 MG/D
     Route: 065
     Dates: start: 20010901, end: 20050123
  2. RITALIN [Suspect]
     Dosage: 25 MG/D
     Dates: start: 20050221, end: 20050405
  3. VITAMIN B COMPLEX CAP [Concomitant]
  4. ASCORBIC ACID [Concomitant]
  5. OMEGA 3 [Concomitant]
  6. OMEGA-6 FATTY ACIDS [Concomitant]

REACTIONS (7)
  - HEPATIC ENZYME INCREASED [None]
  - HEPATITIS A [None]
  - HEPATOMEGALY [None]
  - JAUNDICE [None]
  - LIVER DISORDER [None]
  - NAUSEA [None]
  - URTICARIA [None]
